FAERS Safety Report 18331394 (Version 5)
Quarter: 2021Q3

REPORT INFORMATION
  Report Type: Spontaneous
  Country: US (occurrence: US)
  Receive Date: 20200930
  Receipt Date: 20210922
  Transmission Date: 20211014
  Serious: Yes (Hospitalization, Other)
  Sender: FDA-Public Use
  Company Number: US-ASTRAZENECA-2020SF25312

PATIENT
  Age: 18640 Day
  Sex: Female
  Weight: 90.3 kg

DRUGS (71)
  1. FARXIGA [Suspect]
     Active Substance: DAPAGLIFLOZIN PROPANEDIOL
     Indication: TYPE 2 DIABETES MELLITUS
     Route: 048
     Dates: start: 20171208
  2. ACETAMINOPHEN. [Concomitant]
     Active Substance: ACETAMINOPHEN
  3. LISINOPRIL. [Concomitant]
     Active Substance: LISINOPRIL
  4. ALLOPURINOL. [Concomitant]
     Active Substance: ALLOPURINOL
  5. PREDNISONE. [Concomitant]
     Active Substance: PREDNISONE
  6. SUCRALFATE. [Concomitant]
     Active Substance: SUCRALFATE
  7. PROTONIX [Concomitant]
     Active Substance: PANTOPRAZOLE SODIUM
  8. BENADRYL [Concomitant]
     Active Substance: DIPHENHYDRAMINE HYDROCHLORIDE
  9. NALOXONE [Concomitant]
     Active Substance: NALOXONE
  10. TRAMADOL HCL [Concomitant]
     Active Substance: TRAMADOL HYDROCHLORIDE
  11. FARXIGA [Suspect]
     Active Substance: DAPAGLIFLOZIN PROPANEDIOL
     Indication: HYPOTENSION
     Route: 048
     Dates: start: 20140610, end: 20171208
  12. FARXIGA [Suspect]
     Active Substance: DAPAGLIFLOZIN PROPANEDIOL
     Indication: WEIGHT DECREASED
     Route: 048
     Dates: start: 20141013
  13. TRULICITY [Concomitant]
     Active Substance: DULAGLUTIDE
  14. LORATADINE. [Concomitant]
     Active Substance: LORATADINE
  15. PROMETHAZINE [Concomitant]
     Active Substance: PROMETHAZINE HYDROCHLORIDE
  16. ACETAMINOPHEN AND CODEINE [Concomitant]
     Active Substance: ACETAMINOPHEN\CODEINE PHOSPHATE
  17. CLINDAMYCIN. [Concomitant]
     Active Substance: CLINDAMYCIN
  18. PRAVASTATIN. [Concomitant]
     Active Substance: PRAVASTATIN
  19. METFORMIN [Concomitant]
     Active Substance: METFORMIN HYDROCHLORIDE
  20. HUMALOG [Concomitant]
     Active Substance: INSULIN LISPRO
  21. TRAMADOL. [Concomitant]
     Active Substance: TRAMADOL
  22. NOVOLOG [Concomitant]
     Active Substance: INSULIN ASPART
  23. SIMVASTATIN. [Concomitant]
     Active Substance: SIMVASTATIN
  24. FENTANYL. [Concomitant]
     Active Substance: FENTANYL
  25. NEOMYCIN. [Concomitant]
     Active Substance: NEOMYCIN
  26. MEPERIDINE [Concomitant]
     Active Substance: MEPERIDINE
  27. MORPHINE [Concomitant]
     Active Substance: MORPHINE
  28. CYCLOBENZAPRINE. [Concomitant]
     Active Substance: CYCLOBENZAPRINE
  29. FARXIGA [Suspect]
     Active Substance: DAPAGLIFLOZIN PROPANEDIOL
     Indication: HYPOTENSION
     Route: 048
     Dates: start: 20171208
  30. GABAPENTIN. [Concomitant]
     Active Substance: GABAPENTIN
  31. GEMFIBROZIL. [Concomitant]
     Active Substance: GEMFIBROZIL
  32. CHANTIX [Concomitant]
     Active Substance: VARENICLINE TARTRATE
  33. IBUPROFEN. [Concomitant]
     Active Substance: IBUPROFEN
  34. CEFAZOLIN [Concomitant]
     Active Substance: CEFAZOLIN
  35. LABETALOL [Concomitant]
     Active Substance: LABETALOL\LABETALOL HYDROCHLORIDE
  36. FARXIGA [Suspect]
     Active Substance: DAPAGLIFLOZIN PROPANEDIOL
     Indication: TYPE 2 DIABETES MELLITUS
     Route: 048
     Dates: start: 20141013
  37. LANTUS [Concomitant]
     Active Substance: INSULIN GLARGINE
  38. CEPHALEXIN. [Concomitant]
     Active Substance: CEPHALEXIN
  39. ZOFRAN [Concomitant]
     Active Substance: ONDANSETRON HYDROCHLORIDE
  40. POLYETHYLENE GLYCOL [Concomitant]
     Active Substance: POLYETHYLENE GLYCOLS
  41. PAXIL [Concomitant]
     Active Substance: PAROXETINE HYDROCHLORIDE
     Dates: start: 20190616
  42. FARXIGA [Suspect]
     Active Substance: DAPAGLIFLOZIN PROPANEDIOL
     Indication: TYPE 2 DIABETES MELLITUS
     Route: 048
     Dates: start: 20140610, end: 20171208
  43. FARXIGA [Suspect]
     Active Substance: DAPAGLIFLOZIN PROPANEDIOL
     Indication: WEIGHT DECREASED
     Route: 048
     Dates: start: 20140610, end: 20171208
  44. FARXIGA [Suspect]
     Active Substance: DAPAGLIFLOZIN PROPANEDIOL
     Indication: WEIGHT DECREASED
     Route: 048
     Dates: start: 20171208
  45. FARXIGA [Suspect]
     Active Substance: DAPAGLIFLOZIN PROPANEDIOL
     Indication: HYPOTENSION
     Route: 048
     Dates: start: 20141013
  46. MUPIROCIN. [Concomitant]
     Active Substance: MUPIROCIN
  47. FAMOTIDINE. [Concomitant]
     Active Substance: FAMOTIDINE
  48. IPRATROPIUM [Concomitant]
     Active Substance: IPRATROPIUM
  49. DICLOFENAC [Concomitant]
     Active Substance: DICLOFENAC
     Dates: start: 20190616
  50. PAROXETINE. [Concomitant]
     Active Substance: PAROXETINE
  51. CLOBETASOL [Concomitant]
     Active Substance: CLOBETASOL
  52. OMEPRAZOLE. [Concomitant]
     Active Substance: OMEPRAZOLE
  53. METOCLOPRAMIDE. [Concomitant]
     Active Substance: METOCLOPRAMIDE
  54. DOXYCYCLINE. [Concomitant]
     Active Substance: DOXYCYCLINE
  55. LOVENOX [Concomitant]
     Active Substance: ENOXAPARIN SODIUM
  56. HYDROMORPHONE [Concomitant]
     Active Substance: HYDROMORPHONE
  57. SODIUM BICARBONATE. [Concomitant]
     Active Substance: SODIUM BICARBONATE
  58. VANCOMYCIN [Concomitant]
     Active Substance: VANCOMYCIN
  59. LIDOCAINE. [Concomitant]
     Active Substance: LIDOCAINE
  60. HYDROCODONE BITARTRATE AND ACETAMINOPHEN [Concomitant]
     Active Substance: ACETAMINOPHEN\HYDROCODONE BITARTRATE
  61. METOPROLOL. [Concomitant]
     Active Substance: METOPROLOL
  62. CYCLOBENZAPRINE. [Concomitant]
     Active Substance: CYCLOBENZAPRINE
  63. BYDUREON [Concomitant]
     Active Substance: EXENATIDE
  64. HYDROCODONE/PARACETAMOL [Concomitant]
     Active Substance: ACETAMINOPHEN\HYDROCODONE BITARTRATE
  65. CIPRODEX [Concomitant]
     Active Substance: CIPROFLOXACIN HYDROCHLORIDE\DEXAMETHASONE
  66. HYDRALAZINE [Concomitant]
     Active Substance: HYDRALAZINE HYDROCHLORIDE
  67. OXYCODONE?ACETAMINOPHEN [Concomitant]
     Active Substance: ACETAMINOPHEN\OXYCODONE HYDROCHLORIDE
  68. GLUCOSE [Concomitant]
     Active Substance: DEXTROSE
  69. CLARITIN [Concomitant]
     Active Substance: LORATADINE
     Dates: start: 20190616
  70. DRYSOL [Concomitant]
     Active Substance: ALUMINUM CHLORIDE
     Dates: start: 20190616
  71. MOTRIN [Concomitant]
     Active Substance: IBUPROFEN
     Dates: start: 20190616

REACTIONS (10)
  - Perirectal abscess [Unknown]
  - Cellulitis [Unknown]
  - Dermal cyst [Unknown]
  - Abscess limb [Unknown]
  - Fournier^s gangrene [Unknown]
  - Sepsis [Unknown]
  - Groin abscess [Unknown]
  - Abscess [Unknown]
  - Perineal necrosis [Unknown]
  - Anal abscess [Unknown]

NARRATIVE: CASE EVENT DATE: 20150414
